FAERS Safety Report 8542376-X (Version None)
Quarter: 2012Q3

REPORT INFORMATION
  Report Type: 
  Country: None (occurrence: None)
  Receive Date: 20120726
  Receipt Date: 20110819
  Transmission Date: 20120928
  Serious: Yes (Other)
  Sender: FDA-Public Use
  Company Number: US-ASTRAZENECA-2011SE49811

PATIENT
  Age: 35 Year
  Sex: Male
  Weight: 108.9 kg

DRUGS (1)
  1. SEROQUEL [Suspect]
     Indication: BIPOLAR DISORDER
     Route: 048
     Dates: start: 20020101

REACTIONS (4)
  - ANORECTAL DISORDER [None]
  - DIABETES MELLITUS [None]
  - TARDIVE DYSKINESIA [None]
  - HYPERLIPIDAEMIA [None]
